FAERS Safety Report 7835833-2 (Version None)
Quarter: 2011Q4

REPORT INFORMATION
  Report Type: 
  Country: None (occurrence: None)
  Receive Date: 20111024
  Receipt Date: 20111018
  Transmission Date: 20120403
  Serious: Yes (Other)
  Sender: FDA-Public Use
  Company Number: US-ACTELION-A-US2011-55246

PATIENT

DRUGS (2)
  1. TRACLEER [Suspect]
     Indication: PULMONARY EMBOLISM
     Dosage: UNK
     Route: 048
     Dates: start: 20080218
  2. REVATIO [Concomitant]

REACTIONS (3)
  - ABDOMINAL DISCOMFORT [None]
  - DIVERTICULITIS [None]
  - CONSTIPATION [None]
